FAERS Safety Report 9191054 (Version 1)
Quarter: 2013Q1

REPORT INFORMATION
  Report Type: Spontaneous
  Country: US (occurrence: US)
  Receive Date: 20130326
  Receipt Date: 20130326
  Transmission Date: 20140127
  Serious: Yes (Other)
  Sender: FDA-Public Use
  Company Number: US-OTSUKA-US-2013-10443

PATIENT
  Age: 71 Year
  Sex: Female

DRUGS (2)
  1. SAMSCA [Suspect]
     Indication: PRODUCT USED FOR UNKNOWN INDICATION
     Dosage: 15 MG MILLIGRAM(S), UNK
     Dates: start: 20130310
  2. SALINE [Concomitant]
     Dosage: 30 ML MILLILITRE(S), Q1HR

REACTIONS (1)
  - Blood sodium decreased [Unknown]
